FAERS Safety Report 4300483-1 (Version None)
Quarter: 2004Q1

REPORT INFORMATION
  Report Type: 
  Country: None (occurrence: None)
  Receive Date: 20040219
  Receipt Date: 20040219
  Transmission Date: 20041129
  Serious: Yes (Death)
  Sender: FDA-Public Use
  Company Number: None

PATIENT
  Age: 43 Year
  Sex: Female
  Weight: 97.977 kg

DRUGS (5)
  1. ETOPOSIDE [Suspect]
     Indication: LYMPHOMA
     Dosage: 50 MG/M2 IV
     Route: 042
     Dates: start: 20000701, end: 20040201
  2. VINCRISTINE [Suspect]
     Indication: LYMPHOMA
     Dosage: 0.9 MG/M2 IV
     Route: 042
  3. DOXORUBICIN HCL [Suspect]
     Indication: LYMPHOMA
     Dosage: 10 MG/M2 IV
     Route: 042
  4. CYCLOPHOSPHAMIDE [Suspect]
     Indication: LYMPHOMA
     Dosage: 750 MG/M2 IV
     Route: 042
  5. PREDNISONE [Suspect]
     Indication: LYMPHOMA
     Dosage: 60 MG/M2 PO
     Route: 048

REACTIONS (2)
  - LYMPHOMA [None]
  - MALIGNANT NEOPLASM PROGRESSION [None]
